FAERS Safety Report 12365639 (Version 1)
Quarter: 2016Q2

REPORT INFORMATION
  Report Type: Spontaneous
  Country: US (occurrence: US)
  Receive Date: 20160513
  Receipt Date: 20160513
  Transmission Date: 20160815
  Serious: Yes (Hospitalization, Other)
  Sender: FDA-Public Use
  Company Number: US-GLAXOSMITHKLINE-US2016067024

PATIENT
  Age: 89 Year
  Sex: Female

DRUGS (2)
  1. ADVAIR DISKUS [Suspect]
     Active Substance: FLUTICASONE PROPIONATE\SALMETEROL XINAFOATE
     Indication: ASTHMA
     Dosage: 1 PUFF(S), BID
     Route: 055
  2. ADVAIR DISKUS [Suspect]
     Active Substance: FLUTICASONE PROPIONATE\SALMETEROL XINAFOATE
     Indication: NASAL CONGESTION
     Dosage: UNK UNK, PRN
     Route: 055
     Dates: start: 2014

REACTIONS (8)
  - Loss of consciousness [Recovered/Resolved]
  - Treatment noncompliance [Unknown]
  - Nasal congestion [Unknown]
  - Blood pressure abnormal [Unknown]
  - Underdose [Unknown]
  - Dizziness [Recovered/Resolved]
  - Arterial occlusive disease [Unknown]
  - Wheezing [Unknown]

NARRATIVE: CASE EVENT DATE: 201601
